FAERS Safety Report 24712265 (Version 1)
Quarter: 2024Q4

REPORT INFORMATION
  Report Type: Spontaneous
  Country: US (occurrence: None)
  Receive Date: 20241207
  Receipt Date: 20241207
  Transmission Date: 20250115
  Serious: Yes (Disabling, Other)
  Sender: Public
  Company Number: None

PATIENT
  Age: 41 Year
  Sex: Female
  Weight: 110.25 kg

DRUGS (1)
  1. DUPIXENT [Suspect]
     Active Substance: DUPILUMAB

REACTIONS (5)
  - Arthralgia [None]
  - Back pain [None]
  - Arthralgia [None]
  - Joint noise [None]
  - Hypokinesia [None]

NARRATIVE: CASE EVENT DATE: 20240720
